FAERS Safety Report 5744055-0 (Version None)
Quarter: 2008Q2

REPORT INFORMATION
  Report Type: 
  Country: None (occurrence: None)
  Receive Date: 20080520
  Receipt Date: 20080510
  Transmission Date: 20081010
  Serious: Yes (Other)
  Sender: FDA-Public Use
  Company Number: AU-ABBOTT-08P-008-0451281-00

PATIENT
  Age: 32 Year
  Sex: Female
  Weight: 40 kg

DRUGS (3)
  1. KALETRA [Suspect]
     Indication: HIV INFECTION
     Dosage: DAILY
     Route: 048
     Dates: start: 20080509, end: 20080510
  2. KALETRA [Suspect]
     Dates: start: 20080513
  3. TRUVADA [Suspect]
     Indication: DRUG USE FOR UNKNOWN INDICATION
     Dates: start: 20080509, end: 20080510

REACTIONS (6)
  - ABASIA [None]
  - MOVEMENT DISORDER [None]
  - MUSCULAR WEAKNESS [None]
  - RASH [None]
  - SPEECH DISORDER [None]
  - TONGUE PARALYSIS [None]
